FAERS Safety Report 7017634-0 (Version None)
Quarter: 2010Q3

REPORT INFORMATION
  Report Type: 
  Country: None (occurrence: None)
  Receive Date: 20100928
  Receipt Date: 20100920
  Transmission Date: 20110219
  Serious: Yes (Death, Hospitalization)
  Sender: FDA-Public Use
  Company Number: US-PFIZER INC-2010119851

PATIENT
  Age: 46 Year
  Sex: Female

DRUGS (2)
  1. GEODON [Suspect]
     Dosage: UNK
  2. LIDODERM [Concomitant]
     Dosage: UNK

REACTIONS (2)
  - DEATH [None]
  - ILL-DEFINED DISORDER [None]
